FAERS Safety Report 11317871 (Version 1)
Quarter: 2015Q3

REPORT INFORMATION
  Report Type: Spontaneous
  Country: US (occurrence: US)
  Receive Date: 20150728
  Receipt Date: 20150728
  Transmission Date: 20151125
  Serious: Yes (Hospitalization)
  Sender: FDA-Public Use
  Company Number: US-ABBVIE-15P-163-1430640-00

PATIENT
  Age: 30 Year
  Sex: Female
  Weight: 72.64 kg

DRUGS (9)
  1. IRON [Concomitant]
     Active Substance: IRON
     Indication: VITAMIN SUPPLEMENTATION
  2. HUMIRA [Suspect]
     Active Substance: ADALIMUMAB
     Indication: CROHN^S DISEASE
     Route: 058
     Dates: start: 20150414, end: 20150414
  3. PRENATAL VITAMINS [Concomitant]
     Active Substance: VITAMINS
     Indication: VITAMIN SUPPLEMENTATION
  4. HUMIRA [Suspect]
     Active Substance: ADALIMUMAB
     Route: 058
     Dates: start: 20150512
  5. CALCIUM [Concomitant]
     Active Substance: CALCIUM
     Indication: VITAMIN SUPPLEMENTATION
  6. HUMIRA [Suspect]
     Active Substance: ADALIMUMAB
     Route: 058
     Dates: start: 20150428, end: 20150428
  7. HUMIRA [Suspect]
     Active Substance: ADALIMUMAB
     Route: 058
     Dates: start: 20150530, end: 20150703
  8. LIALDA [Concomitant]
     Active Substance: MESALAMINE
     Indication: CROHN^S DISEASE
  9. FENUGREEK [Concomitant]
     Indication: BREAST FEEDING

REACTIONS (12)
  - Haemorrhoids [Recovering/Resolving]
  - Dehydration [Recovered/Resolved]
  - Injection site urticaria [Not Recovered/Not Resolved]
  - Vomiting [Recovered/Resolved]
  - Drug ineffective [Not Recovered/Not Resolved]
  - Rectal haemorrhage [Recovering/Resolving]
  - Blood potassium decreased [Recovered/Resolved]
  - Abdominal pain [Recovering/Resolving]
  - Diarrhoea [Recovering/Resolving]
  - Nausea [Recovered/Resolved]
  - Diarrhoea [Recovered/Resolved]
  - Injection site rash [Not Recovered/Not Resolved]

NARRATIVE: CASE EVENT DATE: 20150414
